FAERS Safety Report 4293571-X (Version None)
Quarter: 2004Q1

REPORT INFORMATION
  Report Type: 
  Country: None (occurrence: None)
  Receive Date: 20040212
  Receipt Date: 20030702
  Transmission Date: 20041129
  Serious: No
  Sender: FDA-Public Use
  Company Number: US-GLAXOSMITHKLINE-A0414894A

PATIENT
  Age: 75 Year
  Sex: Male

DRUGS (4)
  1. PAXIL [Suspect]
     Dosage: 20MG PER DAY
     Route: 048
     Dates: start: 20030616
  2. ALTACE [Concomitant]
  3. PROTONIX [Concomitant]
  4. CIPRO [Concomitant]
     Dates: end: 20030701

REACTIONS (4)
  - ASTHENIA [None]
  - FEELING ABNORMAL [None]
  - IMPAIRED SELF-CARE [None]
  - SOMNOLENCE [None]
